FAERS Safety Report 5812171-0 (Version None)
Quarter: 2008Q3

REPORT INFORMATION
  Report Type: 
  Country: None (occurrence: None)
  Receive Date: 20080716
  Receipt Date: 20080708
  Transmission Date: 20090109
  Serious: Yes (Disabling)
  Sender: FDA-Public Use
  Company Number: US-ALLERGAN-0806763US

PATIENT
  Sex: Female

DRUGS (13)
  1. BOTOX COSMETIC [Suspect]
     Indication: SKIN WRINKLING
     Dosage: 20 UNITS, SINGLE
     Route: 030
     Dates: start: 20080403, end: 20080403
  2. BOTOX COSMETIC [Suspect]
     Dosage: UNK, SINGLE
     Route: 030
     Dates: start: 20070927, end: 20070927
  3. BOTOX COSMETIC [Suspect]
     Dosage: UNK, SINGLE
     Route: 030
     Dates: start: 20070815, end: 20070815
  4. BOTOX COSMETIC [Suspect]
     Dosage: UNK, SINGLE
     Route: 030
     Dates: start: 20070307, end: 20070307
  5. BOTOX COSMETIC [Suspect]
     Dosage: UNK, SINGLE
     Route: 030
     Dates: start: 20061101, end: 20061101
  6. BOTOX COSMETIC [Suspect]
     Dosage: UNK, SINGLE
     Route: 030
     Dates: start: 20060621, end: 20060621
  7. BOTOX COSMETIC [Suspect]
     Dosage: UNK, SINGLE
     Route: 030
     Dates: start: 20060216, end: 20060216
  8. BOTOX COSMETIC [Suspect]
     Dosage: UNK, SINGLE
     Route: 030
     Dates: start: 20040501, end: 20040501
  9. BOTOX COSMETIC [Suspect]
     Dosage: UNK, SINGLE
     Route: 030
     Dates: start: 20031113, end: 20031113
  10. BOTOX COSMETIC [Suspect]
     Dosage: EVERY 6 TO 9 MONTHS
     Route: 030
     Dates: start: 20020101
  11. ADDERALL 10 [Concomitant]
     Dosage: UNK, QD
  12. CYMBALTA [Concomitant]
  13. MULTI-VITAMIN [Concomitant]
     Dosage: UNK, QD

REACTIONS (4)
  - GAIT DISTURBANCE [None]
  - MEDICATION ERROR [None]
  - PAIN [None]
  - PAIN IN EXTREMITY [None]
